FAERS Safety Report 5926164-6 (Version None)
Quarter: 2008Q4

REPORT INFORMATION
  Report Type: 
  Country: None (occurrence: None)
  Receive Date: 20081017
  Receipt Date: 20081006
  Transmission Date: 20090506
  Serious: Yes (Hospitalization)
  Sender: FDA-Public Use
  Company Number: 230327K08USA

PATIENT
  Age: 41 Year
  Sex: Female
  Weight: 82 kg

DRUGS (3)
  1. REBIF [Suspect]
     Indication: MULTIPLE SCLEROSIS
     Dosage: 44 MCG, 3 IN 1 WEEKS, SUBCUTANEOUS
     Route: 058
     Dates: start: 20061117
  2. SIMVASTATIN [Concomitant]
  3. WELLBUTRIN [Concomitant]

REACTIONS (6)
  - BALANCE DISORDER [None]
  - CHOLELITHIASIS [None]
  - LABYRINTHITIS [None]
  - PANCREATITIS [None]
  - SINUSITIS [None]
  - VIRAL INFECTION [None]
